FAERS Safety Report 17335753 (Version 2)
Quarter: 2020Q1

REPORT INFORMATION
  Report Type: Spontaneous
  Country: SI (occurrence: SI)
  Receive Date: 20200128
  Receipt Date: 20200227
  Transmission Date: 20200409
  Serious: Yes (Death, Other)
  Sender: FDA-Public Use
  Company Number: SI-ABBVIE-20K-261-3252068-00

PATIENT

DRUGS (4)
  1. ADALIMUMAB [Suspect]
     Active Substance: ADALIMUMAB
     Indication: PRODUCT USED FOR UNKNOWN INDICATION
     Route: 058
  2. SECUKINUMAB. [Suspect]
     Active Substance: SECUKINUMAB
     Indication: PRODUCT USED FOR UNKNOWN INDICATION
     Route: 065
  3. INFLIXIMAB [Suspect]
     Active Substance: INFLIXIMAB
     Indication: PRODUCT USED FOR UNKNOWN INDICATION
     Route: 065
  4. ETANERCEPT [Suspect]
     Active Substance: ETANERCEPT
     Indication: PRODUCT USED FOR UNKNOWN INDICATION
     Route: 065

REACTIONS (18)
  - Pain [Fatal]
  - Vomiting [Fatal]
  - Psoriatic arthropathy [Fatal]
  - Crohn^s disease [Fatal]
  - Drug ineffective [Fatal]
  - Headache [Fatal]
  - Fatigue [Fatal]
  - Dyspnoea [Fatal]
  - Injection site reaction [Fatal]
  - Neoplasm malignant [Fatal]
  - Hypersensitivity [Fatal]
  - Infection [Fatal]
  - Nervous system disorder [Fatal]
  - Death [Fatal]
  - Blood test abnormal [Fatal]
  - Colitis ulcerative [Fatal]
  - Urticaria [Fatal]
  - Drug intolerance [Fatal]
